FAERS Safety Report 13881877 (Version 1)
Quarter: 2017Q3

REPORT INFORMATION
  Report Type: Spontaneous
  Country: US (occurrence: US)
  Receive Date: 20170818
  Receipt Date: 20170818
  Transmission Date: 20171127
  Serious: No
  Sender: FDA-Public Use
  Company Number: PHEH2017US026246

PATIENT
  Age: 62 Year
  Sex: Female

DRUGS (1)
  1. VOTRIENT [Suspect]
     Active Substance: PAZOPANIB HYDROCHLORIDE
     Indication: UTERINE CANCER
     Dosage: 400 MG,ALTERNATING WITH 200 MG ALTERNATE DAYS
     Route: 048
     Dates: start: 20170508, end: 20170810

REACTIONS (1)
  - Drug ineffective [Unknown]

NARRATIVE: CASE EVENT DATE: 20170810
